FAERS Safety Report 13592746 (Version 2)
Quarter: 2017Q2

REPORT INFORMATION
  Report Type: Spontaneous
  Country: US (occurrence: US)
  Receive Date: 20170530
  Receipt Date: 20170601
  Transmission Date: 20170830
  Serious: Yes (Other)
  Sender: FDA-Public Use
  Company Number: GXBR2017US001667

PATIENT
  Age: 57 Year
  Sex: Female
  Weight: 74.38 kg

DRUGS (1)
  1. AMOXICILLIN AND CLAVULANATE POTASSIUM TABLETS USP [Suspect]
     Active Substance: AMOXICILLIN\CLAVULANATE POTASSIUM
     Indication: SINUSITIS
     Dosage: 500MG AMOXICILLIN AND 125MG CLAVULANATE, TID
     Route: 065
     Dates: start: 20170330, end: 20170406

REACTIONS (12)
  - Hypersensitivity [Unknown]
  - Gallbladder disorder [Recovering/Resolving]
  - Blood cholesterol increased [Recovering/Resolving]
  - Pancreatitis [Unknown]
  - Pruritus generalised [Recovering/Resolving]
  - Bilirubin urine present [Unknown]
  - Asthenia [Recovering/Resolving]
  - Hepatic enzyme increased [Unknown]
  - Chromaturia [Recovering/Resolving]
  - Hepatitis [Unknown]
  - Paraesthesia [Unknown]
  - Abdominal pain [Recovering/Resolving]

NARRATIVE: CASE EVENT DATE: 20170406
